FAERS Safety Report 6275376-3 (Version None)
Quarter: 2009Q3

REPORT INFORMATION
  Report Type: 
  Country: None (occurrence: None)
  Receive Date: 20090721
  Receipt Date: 20090706
  Transmission Date: 20100115
  Serious: Yes (Other)
  Sender: FDA-Public Use
  Company Number: FR-GENENTECH-286987

PATIENT

DRUGS (2)
  1. AVASTIN [Suspect]
     Indication: OLIGODENDROGLIOMA
     Dosage: 10 MG/KG, Q2W
     Route: 042
  2. CAMPTOSAR [Suspect]
     Indication: OLIGODENDROGLIOMA
     Dosage: UNK
     Route: 042

REACTIONS (6)
  - DEEP VEIN THROMBOSIS [None]
  - EPISTAXIS [None]
  - FATIGUE [None]
  - NEUTROPENIA [None]
  - TRANSAMINASES INCREASED [None]
  - TUMOUR HAEMORRHAGE [None]
